FAERS Safety Report 12892080 (Version 1)
Quarter: 2016Q4

REPORT INFORMATION
  Report Type: Report from Study
  Country: IT (occurrence: IT)
  Receive Date: 20161028
  Receipt Date: 20161028
  Transmission Date: 20170207
  Serious: Yes (Other)
  Sender: FDA-Public Use
  Company Number: IT-BRISTOL-MYERS SQUIBB COMPANY-BMS-2016-088180

PATIENT
  Age: 77 Year
  Sex: Male

DRUGS (1)
  1. NIVOLUMAB [Suspect]
     Active Substance: NIVOLUMAB
     Indication: NON-SMALL CELL LUNG CANCER
     Dosage: 3 MG/KG, UNK
     Route: 042
     Dates: start: 20150812

REACTIONS (10)
  - Cough [Recovering/Resolving]
  - Dyspnoea [Recovered/Resolved]
  - Lymphatic disorder [Unknown]
  - Oedema [Unknown]
  - Cystitis [Unknown]
  - Presyncope [Recovered/Resolved]
  - Rash [Recovered/Resolved]
  - Erythema [Unknown]
  - Oedema peripheral [Unknown]
  - Localised oedema [Unknown]

NARRATIVE: CASE EVENT DATE: 20150814
